FAERS Safety Report 6591398-7 (Version None)
Quarter: 2010Q1

REPORT INFORMATION
  Report Type: 
  Country: None (occurrence: None)
  Receive Date: 20100219
  Receipt Date: 20100210
  Transmission Date: 20100710
  Serious: Yes (Other)
  Sender: FDA-Public Use
  Company Number: US-AMGEN-QUU392251

PATIENT
  Sex: Female

DRUGS (5)
  1. NPLATE [Suspect]
     Indication: IDIOPATHIC THROMBOCYTOPENIC PURPURA
     Dates: start: 20090204, end: 20090227
  2. CORTICOSTEROIDS [Concomitant]
     Dates: start: 20081230, end: 20090126
  3. IMMU-G [Concomitant]
     Dates: start: 20081230, end: 20090104
  4. RITUXIMAB [Concomitant]
     Dates: start: 20090119, end: 20090126
  5. VINCRISTINE [Concomitant]
     Dates: start: 20090105, end: 20090126

REACTIONS (2)
  - ACUTE CORONARY SYNDROME [None]
  - MYOCARDIAL INFARCTION [None]
